FAERS Safety Report 8160408-8 (Version None)
Quarter: 2012Q1

REPORT INFORMATION
  Report Type: 
  Country: None (occurrence: None)
  Receive Date: 20120223
  Receipt Date: 20120214
  Transmission Date: 20120608
  Serious: Yes (Other)
  Sender: FDA-Public Use
  Company Number: CA-JNJFOC-20120208930

PATIENT
  Age: 75 Year
  Sex: Female

DRUGS (20)
  1. VITAMIN B COMPLEX CAP [Concomitant]
     Indication: MEDICAL DIET
     Route: 065
  2. CALCIUM [Concomitant]
     Indication: MEDICAL DIET
     Route: 065
  3. HYDROCHLOROTHIAZIDE [Concomitant]
     Indication: HYPERTENSION
     Route: 065
  4. ATENOLOL [Concomitant]
     Indication: HYPERTENSION
     Route: 065
  5. MICARDIS [Concomitant]
     Indication: HYPERTENSION
     Route: 065
  6. TYLENOL PM EXTRA STRENGTH CAPLETS [Suspect]
     Indication: ARTHRALGIA
     Route: 048
     Dates: start: 20111201
  7. ONE A DAY MULTIVITAMIN [Concomitant]
     Indication: MEDICAL DIET
     Route: 065
  8. TYLENOL PM EXTRA STRENGTH CAPLETS [Suspect]
     Route: 048
     Dates: start: 20111101
  9. TYLENOL PM EXTRA STRENGTH CAPLETS [Suspect]
     Route: 048
     Dates: start: 20120101, end: 20120201
  10. TYLENOL PM EXTRA STRENGTH CAPLETS [Suspect]
     Route: 048
     Dates: start: 20120101, end: 20120201
  11. TYLENOL PM EXTRA STRENGTH CAPLETS [Suspect]
     Indication: SLEEP DISORDER THERAPY
     Route: 048
     Dates: start: 20120101, end: 20120201
  12. VITAMIN D [Concomitant]
     Indication: MEDICAL DIET
     Route: 065
  13. TYLENOL PM EXTRA STRENGTH CAPLETS [Suspect]
     Route: 048
     Dates: start: 20111201
  14. TYLENOL PM EXTRA STRENGTH CAPLETS [Suspect]
     Route: 048
     Dates: start: 20111201
  15. TYLENOL PM EXTRA STRENGTH CAPLETS [Suspect]
     Route: 048
     Dates: start: 20111101
  16. ESTER C [Concomitant]
     Indication: MEDICAL DIET
     Route: 065
  17. FLONASE [Concomitant]
     Indication: MULTIPLE ALLERGIES
     Route: 065
  18. VITALUX NOS [Concomitant]
     Indication: MACULAR DEGENERATION
     Route: 065
  19. TYLENOL PM EXTRA STRENGTH CAPLETS [Suspect]
     Indication: MUSCULOSKELETAL PAIN
     Route: 048
     Dates: start: 20111101
  20. PREMARIN [Concomitant]
     Indication: HORMONE REPLACEMENT THERAPY
     Route: 065

REACTIONS (1)
  - BLOOD PRESSURE INCREASED [None]
